FAERS Safety Report 14395066 (Version 1)
Quarter: 2018Q1

REPORT INFORMATION
  Report Type: Spontaneous
  Country: JP (occurrence: JP)
  Receive Date: 20180116
  Receipt Date: 20180116
  Transmission Date: 20180509
  Serious: Yes (Other)
  Sender: FDA-Public Use
  Company Number: JP-PFIZER INC-2017501725

PATIENT
  Sex: Female

DRUGS (2)
  1. WYPAX 0.5 [Suspect]
     Active Substance: LORAZEPAM
     Indication: ANXIETY DISORDER
     Dosage: 0.25 MG, 3X/DAY
     Route: 048
     Dates: start: 2017
  2. WYPAX 0.5 [Suspect]
     Active Substance: LORAZEPAM
     Dosage: 0.5 MG, 2X/DAY
     Route: 048
     Dates: start: 2017

REACTIONS (5)
  - Disorientation [Unknown]
  - Autonomic nervous system imbalance [Unknown]
  - Mental impairment [Unknown]
  - Dizziness [Unknown]
  - Consciousness fluctuating [Unknown]
